FAERS Safety Report 9510134 (Version 1)
Quarter: 2013Q3

REPORT INFORMATION
  Report Type: Spontaneous
  Country: US (occurrence: US)
  Receive Date: 20130909
  Receipt Date: 20130909
  Transmission Date: 20140515
  Serious: No
  Sender: FDA-Public Use
  Company Number: US-BRISTOL-MYERS SQUIBB COMPANY-18838003

PATIENT
  Age: 33 Year
  Sex: Male
  Weight: 81.63 kg

DRUGS (4)
  1. ABILIFY [Suspect]
     Indication: MAJOR DEPRESSION
     Dosage: ABILIFY 20MG AND ABILIFY 5MG (25MG DAILY). STARTED 1 AND HALF YR AGO
  2. ABILIFY [Suspect]
     Indication: ANXIETY
     Dosage: ABILIFY 20MG AND ABILIFY 5MG (25MG DAILY). STARTED 1 AND HALF YR AGO
  3. PAXIL [Concomitant]
  4. CLONAZEPAM [Concomitant]

REACTIONS (7)
  - Restlessness [Unknown]
  - Sleep disorder [Unknown]
  - Weight increased [Recovering/Resolving]
  - Confusional state [Unknown]
  - Weight decreased [Unknown]
  - Somnolence [Unknown]
  - Insomnia [Unknown]
